FAERS Safety Report 5704213-8 (Version None)
Quarter: 2008Q2

REPORT INFORMATION
  Report Type: 
  Country: None (occurrence: None)
  Receive Date: 20080414
  Receipt Date: 20080303
  Transmission Date: 20081010
  Serious: No
  Sender: FDA-Public Use
  Company Number: US-BAYER-200815909NA

PATIENT
  Age: 35 Year
  Sex: Male
  Weight: 73 kg

DRUGS (2)
  1. ULTRAVIST 150 [Suspect]
     Indication: COMPUTERISED TOMOGRAM
     Route: 042
     Dates: start: 20080228, end: 20080228
  2. ORAL CONTRAST MEDIA [Concomitant]
     Route: 048
     Dates: start: 20080201, end: 20080201

REACTIONS (1)
  - URTICARIA [None]
